FAERS Safety Report 5269923-8 (Version None)
Quarter: 2007Q1

REPORT INFORMATION
  Report Type: 
  Country: None (occurrence: None)
  Receive Date: 20070314
  Receipt Date: 20070226
  Transmission Date: 20070707
  Serious: Yes (Hospitalization)
  Sender: FDA-Public Use
  Company Number: 2007000370

PATIENT
  Age: 58 Year
  Sex: Female

DRUGS (6)
  1. ERLOTINIB (TABLET) (ERLOTINIB HCL) [Suspect]
     Indication: GLIOBLASTOMA MULTIFORME
     Dosage: 200 MG (QD), ORAL
     Dates: start: 20070113
  2. WAFARIN SODIUM [Concomitant]
  3. DECADRON [Concomitant]
  4. PERCOCET [Concomitant]
  5. KEPPRA [Concomitant]
  6. LIPITOR [Concomitant]

REACTIONS (4)
  - INTERNATIONAL NORMALISED RATIO INCREASED [None]
  - RED BLOOD CELL COUNT DECREASED [None]
  - THROMBOCYTOPENIA [None]
  - WHITE BLOOD CELL COUNT DECREASED [None]
